FAERS Safety Report 12083012 (Version 1)
Quarter: 2016Q1

REPORT INFORMATION
  Report Type: Spontaneous
  Country: None (occurrence: None)
  Receive Date: 20160216
  Receipt Date: 20160216
  Transmission Date: 20160526
  Serious: Yes (Disabling)
  Sender: FDA-Public Use
  Company Number: None

PATIENT
  Age: 41 Year
  Sex: Female
  Weight: 60.78 kg

DRUGS (1)
  1. BACLOFEN. [Suspect]
     Active Substance: BACLOFEN

REACTIONS (4)
  - Activities of daily living impaired [None]
  - Pain in extremity [None]
  - Sleep disorder [None]
  - Heart rate increased [None]

NARRATIVE: CASE EVENT DATE: 20150819
